FAERS Safety Report 25001084 (Version 1)
Quarter: 2025Q1

REPORT INFORMATION
  Report Type: Spontaneous
  Country: FR (occurrence: FR)
  Receive Date: 20250222
  Receipt Date: 20250222
  Transmission Date: 20250409
  Serious: Yes (Other)
  Sender: TEVA
  Company Number: None

PATIENT
  Age: 48 Year
  Sex: Male

DRUGS (3)
  1. CLOZAPINE [Suspect]
     Active Substance: CLOZAPINE
     Indication: Schizophrenia
     Dosage: 400 MG IN THE EVENING
     Route: 048
     Dates: start: 2018
  2. XANAX [Concomitant]
     Active Substance: ALPRAZOLAM
     Indication: Schizophrenia
     Route: 048
     Dates: start: 202412
  3. VALPROMIDE [Concomitant]
     Active Substance: VALPROMIDE
     Indication: Schizophrenia
     Dosage: 1200 MG IN THE EVENING
     Route: 048
     Dates: start: 2018

REACTIONS (1)
  - Myocardial ischaemia [Recovered/Resolved]

NARRATIVE: CASE EVENT DATE: 20250105
